FAERS Safety Report 8830509 (Version 3)
Quarter: 2012Q4

REPORT INFORMATION
  Report Type: 
  Country: US (occurrence: US)
  Receive Date: 20121009
  Receipt Date: 20121106
  Transmission Date: 20130627
  Serious: Yes (Hospitalization)
  Sender: FDA-Public Use
  Company Number: US-ACTELION-A-US2012-71055

PATIENT
  Age: 54 Year
  Sex: Female

DRUGS (7)
  1. VELETRI [Suspect]
     Indication: PULMONARY ARTERIAL HYPERTENSION
     Dosage: 39 ng/kg, per min
     Route: 042
     Dates: start: 20110804
  2. ATENOLOL [Concomitant]
  3. BACTRIM DS [Concomitant]
  4. HYDROCHLOROTHIAZIDE [Concomitant]
  5. NORVASC [Concomitant]
  6. COMBIVENT [Concomitant]
  7. NEURONTIN [Concomitant]

REACTIONS (5)
  - Pneumonia [Unknown]
  - Upper respiratory tract infection [Unknown]
  - Parotitis [Recovered/Resolved]
  - Neck pain [Recovered/Resolved]
  - Local swelling [Recovered/Resolved]
